FAERS Safety Report 18506828 (Version 2)
Quarter: 2020Q4

REPORT INFORMATION
  Report Type: Spontaneous
  Country: FR (occurrence: FR)
  Receive Date: 20201116
  Receipt Date: 20201215
  Transmission Date: 20210114
  Serious: Yes (Hospitalization)
  Sender: FDA-Public Use
  Company Number: NVSC2020FR301535

PATIENT
  Age: 69 Year
  Sex: Male
  Weight: 70.8 kg

DRUGS (7)
  1. KARDEGIC [Suspect]
     Active Substance: ASPIRIN DL-LYSINE
     Indication: PROPHYLAXIS
     Dosage: 75 MG, QD
     Route: 048
  2. DEXAMETHASONE. [Suspect]
     Active Substance: DEXAMETHASONE
     Indication: PLASMA CELL MYELOMA
     Dosage: UNK
     Route: 042
     Dates: start: 20200519, end: 20200722
  3. REVLIMID [Suspect]
     Active Substance: LENALIDOMIDE
     Indication: PLASMA CELL MYELOMA
     Dosage: UNK
     Route: 042
     Dates: start: 20200519, end: 20200722
  4. MOZOBIL [Suspect]
     Active Substance: PLERIXAFOR
     Indication: TRANSPLANT
     Dosage: 1 DF (TOTAL)
     Route: 058
     Dates: start: 20200816, end: 20200816
  5. ALPRAZOLAM. [Suspect]
     Active Substance: ALPRAZOLAM
     Indication: ANXIETY
     Dosage: 0.5 MG, QD
     Route: 048
  6. NEUPOGEN [Suspect]
     Active Substance: FILGRASTIM
     Indication: TRANSPLANT
     Dosage: 78 MIU, QD (48MU - 0 - 30MU)
     Route: 058
     Dates: start: 20200813, end: 20200817
  7. VELCADE [Suspect]
     Active Substance: BORTEZOMIB
     Indication: PLASMA CELL MYELOMA
     Dosage: UNK
     Route: 042
     Dates: start: 20200519, end: 20200722

REACTIONS (1)
  - Organising pneumonia [Recovering/Resolving]

NARRATIVE: CASE EVENT DATE: 202008
